FAERS Safety Report 26201400 (Version 1)
Quarter: 2025Q4

REPORT INFORMATION
  Report Type: Spontaneous
  Country: US (occurrence: US)
  Receive Date: 20251226
  Receipt Date: 20251226
  Transmission Date: 20260118
  Serious: No
  Sender: NOVARTIS
  Company Number: US-002147023-NVSC2025US195496

PATIENT
  Sex: Male

DRUGS (1)
  1. VANRAFIA [Suspect]
     Active Substance: ATRASENTAN HYDROCHLORIDE
     Indication: IgA nephropathy
     Dosage: UNK (PILL)
     Route: 065
     Dates: start: 20250401, end: 20251226

REACTIONS (8)
  - Renal disorder [Unknown]
  - Fatigue [Unknown]
  - Constipation [Unknown]
  - Flank pain [Unknown]
  - Skin discolouration [Unknown]
  - Feeling hot [Unknown]
  - Hypoaesthesia [Unknown]
  - Somnolence [Unknown]
